FAERS Safety Report 4899601-6 (Version None)
Quarter: 2006Q1

REPORT INFORMATION
  Report Type: 
  Country: None (occurrence: None)
  Receive Date: 20060118
  Receipt Date: 20050804
  Transmission Date: 20060701
  Serious: No
  Sender: FDA-Public Use
  Company Number: 2005001521

PATIENT
  Age: 63 Year
  Sex: Male
  Weight: 72.5755 kg

DRUGS (1)
  1. TARCEVA [Suspect]
     Indication: LUNG NEOPLASM MALIGNANT
     Dosage: 150 MG (QD), ORAL
     Route: 048
     Dates: start: 20050512, end: 20050612

REACTIONS (2)
  - NEOPLASM SKIN [None]
  - RASH [None]
